FAERS Safety Report 22022562 (Version 2)
Quarter: 2023Q1

REPORT INFORMATION
  Report Type: Spontaneous
  Country: US (occurrence: US)
  Receive Date: 20230222
  Receipt Date: 20230302
  Transmission Date: 20230417
  Serious: No
  Sender: FDA-Public Use
  Company Number: US-SA-SAC20230220000617

PATIENT

DRUGS (1)
  1. LARONIDASE [Suspect]
     Active Substance: LARONIDASE
     Indication: Mucopolysaccharidosis I
     Dosage: 9 (UNIT NOT PROVIDED), QW
     Route: 042
     Dates: start: 20210722

REACTIONS (4)
  - Stridor [Recovered/Resolved]
  - Complement factor C3 increased [Unknown]
  - Tryptase decreased [Unknown]
  - Ear operation [Recovered/Resolved]

NARRATIVE: CASE EVENT DATE: 20230208
